FAERS Safety Report 9614557 (Version 1)
Quarter: 2013Q4

REPORT INFORMATION
  Report Type: Spontaneous
  Country: FR (occurrence: FR)
  Receive Date: 20131011
  Receipt Date: 20131011
  Transmission Date: 20140711
  Serious: Yes (Other)
  Sender: FDA-Public Use
  Company Number: PHHY2013FR113955

PATIENT
  Age: 15 Year
  Sex: Male

DRUGS (2)
  1. RITALINE [Suspect]
     Dosage: UNK UKN, UNK
     Route: 048
     Dates: start: 201304
  2. CURACNE [Suspect]
     Dosage: 20 MG, QD
     Route: 048
     Dates: start: 201210

REACTIONS (1)
  - Eosinophilia [Recovered/Resolved]
